FAERS Safety Report 6630842-3 (Version None)
Quarter: 2010Q1

REPORT INFORMATION
  Report Type: 
  Country: None (occurrence: None)
  Receive Date: 20100311
  Receipt Date: 20100302
  Transmission Date: 20100710
  Serious: Yes (Other)
  Sender: FDA-Public Use
  Company Number: FR-PFIZER INC-2010026605

PATIENT
  Sex: Female

DRUGS (1)
  1. CADUET [Suspect]
     Indication: BLOOD PRESSURE ABNORMAL

REACTIONS (4)
  - GOITRE [None]
  - MUSCULOSKELETAL STIFFNESS [None]
  - NECK PAIN [None]
  - PAIN IN EXTREMITY [None]
